FAERS Safety Report 9515303 (Version 1)
Quarter: 2013Q1

REPORT INFORMATION
  Report Type: Spontaneous
  Country: US (occurrence: None)
  Receive Date: 20130305
  Receipt Date: 20130305
  Transmission Date: 20140127
  Serious: Yes (Hospitalization)
  Sender: FDA-Public Use
  Company Number: 163-21880-12113969

PATIENT
  Age: 83 Year
  Sex: Female

DRUGS (1)
  1. REVLIMID (LENALIDOMIDE) (CAPSULES) [Suspect]
     Indication: MYELODYSPLASTIC SYNDROME
     Dosage: 2.5MG, 28 IN 28 D, PO
     Route: 048
     Dates: start: 20120321

REACTIONS (4)
  - Confusional state [None]
  - Red blood cell count decreased [None]
  - Platelet count decreased [None]
  - Urinary tract infection [None]
